FAERS Safety Report 4414352-X (Version None)
Quarter: 2004Q3

REPORT INFORMATION
  Report Type: 
  Country: None (occurrence: None)
  Receive Date: 20040701
  Receipt Date: 20040217
  Transmission Date: 20050211
  Serious: Yes (Death, Hospitalization)
  Sender: FDA-Public Use
  Company Number: VISP-PR-0402S-0067(0)

PATIENT
  Age: 48 Year
  Sex: Female
  Weight: 68.0396 kg

DRUGS (2)
  1. VISIPAQUE [Suspect]
     Indication: ROAD TRAFFIC ACCIDENT
     Dosage: 150 ML, SINGLE DOSE, I.V. (SEE IMAGE)
     Route: 042
     Dates: start: 20040210, end: 20040210
  2. CEFAZOLIN SODIUM (ANCEF) [Concomitant]

REACTIONS (1)
  - ANAPHYLACTIC SHOCK [None]
